FAERS Safety Report 15587423 (Version 3)
Quarter: 2018Q4

REPORT INFORMATION
  Report Type: Report from Study
  Country: DE (occurrence: DE)
  Receive Date: 20181105
  Receipt Date: 20181206
  Transmission Date: 20190205
  Serious: Yes (Hospitalization)
  Sender: FDA-Public Use
  Company Number: DE-PFIZER INC-2018451363

PATIENT
  Age: 78 Year
  Sex: Female
  Weight: 79 kg

DRUGS (5)
  1. PREDNISOLON [Concomitant]
     Active Substance: PREDNISOLONE
     Indication: RHEUMATOID ARTHRITIS
     Dosage: UNK
     Route: 048
     Dates: start: 2011
  2. GABAPENTIN. [Concomitant]
     Active Substance: GABAPENTIN
     Indication: POLYNEUROPATHY
     Dosage: UNK
     Route: 048
  3. XELJANZ [Suspect]
     Active Substance: TOFACITINIB CITRATE
     Indication: RHEUMATOID ARTHRITIS
     Dosage: 5 MG, 2X/DAY
     Route: 048
     Dates: start: 20180628, end: 20181030
  4. THYRONAJOD [Concomitant]
     Active Substance: LEVOTHYROXINE SODIUM\POTASSIUM IODIDE
     Indication: HYPERTHYROIDISM
     Dosage: UNK
     Route: 048
  5. ALENDRONIC ACID/CALCIUM CARBONATE [Concomitant]
     Indication: OSTEOPOROSIS
     Dosage: UNK
     Route: 048
     Dates: start: 201806

REACTIONS (1)
  - Bladder transitional cell carcinoma [Not Recovered/Not Resolved]

NARRATIVE: CASE EVENT DATE: 20181010
